FAERS Safety Report 24324263 (Version 2)
Quarter: 2024Q3

REPORT INFORMATION
  Report Type: Spontaneous
  Country: US (occurrence: US)
  Receive Date: 20240916
  Receipt Date: 20240920
  Transmission Date: 20241017
  Serious: No
  Sender: PFIZER
  Company Number: US-PFIZER INC-202400254066

PATIENT

DRUGS (1)
  1. CYTOMEL [Suspect]
     Active Substance: LIOTHYRONINE SODIUM
     Dosage: UNK

REACTIONS (9)
  - Taste disorder [Unknown]
  - Feeling cold [Unknown]
  - Drug hypersensitivity [Unknown]
  - Sluggishness [Unknown]
  - Therapeutic product effect incomplete [Unknown]
  - Dyspnoea [Unknown]
  - Product physical issue [Unknown]
  - Product taste abnormal [Unknown]
  - Poor quality product administered [Unknown]
